FAERS Safety Report 9365995 (Version 5)
Quarter: 2014Q1

REPORT INFORMATION
  Report Type: Report from Study
  Country: FR (occurrence: FR)
  Receive Date: 20130625
  Receipt Date: 20140114
  Transmission Date: 20141002
  Serious: Yes (Hospitalization)
  Sender: FDA-Public Use
  Company Number: FR-ROCHE-1237769

PATIENT
  Age: 51 Year
  Sex: Male
  Weight: 57 kg

DRUGS (7)
  1. BEVACIZUMAB [Suspect]
     Indication: LUNG NEOPLASM MALIGNANT
     Dosage: LAST DOSE PRIOR TO SAE 15/MAY/2013
     Route: 042
     Dates: start: 20130418
  2. PEMETREXED [Suspect]
     Indication: LUNG NEOPLASM MALIGNANT
     Dosage: LAST DOSE PRIOR TO SAE  15/MAY/2013
     Route: 042
     Dates: start: 20130418
  3. FLAGYL [Concomitant]
     Route: 065
     Dates: start: 20130605
  4. PARACETAMOL/CODEINE [Concomitant]
     Route: 065
     Dates: start: 20130605
  5. INEXIUM [Concomitant]
     Route: 065
     Dates: start: 20130605
  6. KARDEGIC [Concomitant]
     Route: 065
  7. TOPALGIC (FRANCE) [Concomitant]
     Route: 065
     Dates: start: 20130418

REACTIONS (1)
  - General physical health deterioration [Recovered/Resolved]
